FAERS Safety Report 16679691 (Version 11)
Quarter: 2022Q1

REPORT INFORMATION
  Report Type: Spontaneous
  Country: US (occurrence: US)
  Receive Date: 20190807
  Receipt Date: 20220311
  Transmission Date: 20220423
  Serious: Yes (Other)
  Sender: FDA-Public Use
  Company Number: US-PFIZER INC-2019335382

PATIENT
  Age: 73 Year
  Sex: Female
  Weight: 57 kg

DRUGS (2)
  1. PREMARIN [Suspect]
     Active Substance: ESTROGENS, CONJUGATED
     Indication: Postmenopause
     Dosage: 0.625 MG
     Dates: start: 1984
  2. PREMARIN [Suspect]
     Active Substance: ESTROGENS, CONJUGATED
     Indication: Hormone replacement therapy
     Dosage: 0.625 MG, 1X/DAY
     Route: 048

REACTIONS (14)
  - Autoimmune thyroiditis [Unknown]
  - Basedow^s disease [Unknown]
  - Crohn^s disease [Unknown]
  - Impaired gastric emptying [Unknown]
  - Oral disorder [Unknown]
  - Tooth disorder [Unknown]
  - Pain [Unknown]
  - Temporomandibular joint syndrome [Unknown]
  - Tooth fracture [Unknown]
  - Bruxism [Unknown]
  - Illness [Unknown]
  - Visual impairment [Unknown]
  - Feeling abnormal [Unknown]
  - Insomnia [Unknown]
